FAERS Safety Report 4333693-8 (Version None)
Quarter: 2004Q2

REPORT INFORMATION
  Report Type: 
  Country: None (occurrence: None)
  Receive Date: 20040402
  Receipt Date: 20040319
  Transmission Date: 20050107
  Serious: Yes (Hospitalization)
  Sender: FDA-Public Use
  Company Number: 2004019819

PATIENT
  Age: 70 Year
  Sex: Male
  Weight: 61.2356 kg

DRUGS (5)
  1. GEODON [Suspect]
     Indication: DEMENTIA
     Dosage: ORAL
     Route: 048
     Dates: start: 20040101, end: 20040101
  2. DONEPEZIL HCL [Concomitant]
  3. RISPERIDONE [Concomitant]
  4. LEVOTHYROXINE SODIUM [Concomitant]
  5. PHENYTOIN SODIUM [Concomitant]

REACTIONS (5)
  - ABNORMAL BEHAVIOUR [None]
  - AGGRESSION [None]
  - ANXIETY [None]
  - DISSOCIATIVE IDENTITY DISORDER [None]
  - INSOMNIA [None]
